FAERS Safety Report 9159004 (Version 2)
Quarter: 2013Q2

REPORT INFORMATION
  Report Type: Spontaneous
  Country: US (occurrence: US)
  Receive Date: 20130313
  Receipt Date: 20130531
  Transmission Date: 20140414
  Serious: No
  Sender: FDA-Public Use
  Company Number: US-BIOGENIDEC-2013BI022114

PATIENT
  Age: 32 Year
  Sex: Female

DRUGS (3)
  1. TYSABRI [Suspect]
     Indication: MULTIPLE SCLEROSIS
     Route: 042
     Dates: start: 20080118, end: 20130227
  2. BETASERON [Concomitant]
     Indication: MULTIPLE SCLEROSIS
  3. COPAXONE [Concomitant]
     Indication: MULTIPLE SCLEROSIS

REACTIONS (32)
  - Migraine [Recovered/Resolved]
  - Dysgeusia [Not Recovered/Not Resolved]
  - Hypoaesthesia [Not Recovered/Not Resolved]
  - Hemiplegia [Recovered/Resolved]
  - Stress [Not Recovered/Not Resolved]
  - Retching [Recovered/Resolved]
  - Staring [Recovered/Resolved]
  - Erythema [Recovered/Resolved]
  - Aphagia [Recovered/Resolved]
  - Abdominal pain [Recovered/Resolved]
  - Wheezing [Recovered/Resolved]
  - Panic attack [Recovered/Resolved]
  - Mental impairment [Recovered/Resolved]
  - Feeling abnormal [Not Recovered/Not Resolved]
  - Pain [Recovered/Resolved]
  - Gait disturbance [Unknown]
  - Fluid retention [Not Recovered/Not Resolved]
  - Weight increased [Not Recovered/Not Resolved]
  - Visual impairment [Not Recovered/Not Resolved]
  - Eye pain [Unknown]
  - Pain in extremity [Unknown]
  - Vocal cord disorder [Not Recovered/Not Resolved]
  - Adverse drug reaction [Unknown]
  - Multiple sclerosis relapse [Recovered/Resolved]
  - Infusion related reaction [Recovered/Resolved]
  - Dizziness [Recovered/Resolved]
  - Nausea [Not Recovered/Not Resolved]
  - Asthenia [Not Recovered/Not Resolved]
  - Dyspnoea [Recovered/Resolved]
  - Chest discomfort [Recovered/Resolved]
  - Fatigue [Not Recovered/Not Resolved]
  - Multiple sclerosis [Unknown]
